FAERS Safety Report 20031141 (Version 1)
Quarter: 2021Q4

REPORT INFORMATION
  Report Type: Report from Study
  Country: CA (occurrence: CA)
  Receive Date: 20211103
  Receipt Date: 20211103
  Transmission Date: 20220303
  Serious: Yes (Other)
  Sender: FDA-Public Use
  Company Number: CA-PFIZER INC-202101449391

PATIENT

DRUGS (7)
  1. METHOTREXATE SODIUM [Suspect]
     Active Substance: METHOTREXATE SODIUM
     Dosage: 2.5 MG, WEEKLY
  2. RITUXIMAB [Suspect]
     Active Substance: RITUXIMAB
  3. ROSUVASTATIN [Suspect]
     Active Substance: ROSUVASTATIN
  4. GLICLAZIDE [Suspect]
     Active Substance: GLICLAZIDE
  5. METFORMIN [Suspect]
     Active Substance: METFORMIN HYDROCHLORIDE
  6. OMEPRAZOLE [Suspect]
     Active Substance: OMEPRAZOLE
  7. PERINDOPRIL [Suspect]
     Active Substance: PERINDOPRIL

REACTIONS (3)
  - Asthma [Unknown]
  - Diabetes mellitus [Unknown]
  - Hypertension [Unknown]
